FAERS Safety Report 7704256-9 (Version None)
Quarter: 2011Q3

REPORT INFORMATION
  Report Type: 
  Country: None (occurrence: None)
  Receive Date: 20110823
  Receipt Date: 20110810
  Transmission Date: 20111222
  Serious: No
  Sender: FDA-Public Use
  Company Number: US-B.I. PHARMACEUTICALS,INC./RIDGEFIELD-2011-BP-19699BP

PATIENT
  Sex: Male

DRUGS (5)
  1. PRADAXA [Suspect]
     Indication: ATRIAL FIBRILLATION
     Dosage: 300 MG
     Route: 048
     Dates: start: 20110710
  2. PRAVASTATIN [Concomitant]
     Indication: BLOOD CHOLESTEROL INCREASED
     Route: 048
  3. DULCOLAX [Concomitant]
     Indication: FAECES HARD
     Route: 048
  4. COREG [Concomitant]
     Indication: ATRIAL FIBRILLATION
     Route: 048
  5. FLOMAX [Concomitant]
     Indication: PROSTATITIS
     Route: 048

REACTIONS (1)
  - DYSGEUSIA [None]
